FAERS Safety Report 6155442-3 (Version None)
Quarter: 2009Q2

REPORT INFORMATION
  Report Type: 
  Country: None (occurrence: None)
  Receive Date: 20090413
  Receipt Date: 20090402
  Transmission Date: 20091009
  Serious: Yes (Other)
  Sender: FDA-Public Use
  Company Number: 58289

PATIENT
  Age: 88 Year
  Sex: Male

DRUGS (1)
  1. ACETYLCYSTEINE [Suspect]
     Dosage: 6000MG
     Dates: start: 20090401

REACTIONS (2)
  - DIARRHOEA [None]
  - DRUG PRESCRIBING ERROR [None]
